FAERS Safety Report 7755652-5 (Version None)
Quarter: 2011Q3

REPORT INFORMATION
  Report Type: 
  Country: None (occurrence: None)
  Receive Date: 20110916
  Receipt Date: 20110912
  Transmission Date: 20111222
  Serious: Yes (Hospitalization)
  Sender: FDA-Public Use
  Company Number: US-SANOFI-AVENTIS-2011SA034370

PATIENT
  Age: 61 Year
  Sex: Male
  Weight: 95.3 kg

DRUGS (42)
  1. AMIODARONE HCL [Concomitant]
  2. ANTIHISTAMINES [Concomitant]
     Indication: PROPHYLAXIS
     Dosage: WEEKS 1, 4
  3. VITAMIN TAB [Concomitant]
     Indication: PROPHYLAXIS
     Dosage: BASELINE, WEEKS 1, 4
  4. THYROID PREPARATIONS [Concomitant]
     Indication: ADVERSE EVENT
     Dosage: WEEK 4
  5. TAXOTERE [Suspect]
     Route: 041
     Dates: start: 20110509, end: 20110509
  6. CASODEX [Suspect]
     Indication: PROSTATE CANCER
     Dosage: 50 MG ORALLY DAILY FOR 4 WEEKS
     Route: 048
     Dates: start: 20110418, end: 20110517
  7. ATORVASTATIN [Concomitant]
  8. LOVAZA [Concomitant]
     Dosage: 4 PER DAY
  9. KLOR-CON [Concomitant]
  10. DIGOXIN [Concomitant]
  11. NITROGLYCERIN [Concomitant]
  12. ALL OTHER THERAPEUTIC PRODUCTS [Concomitant]
     Dosage: WEEKS 1, 4
  13. ASPIRIN [Concomitant]
  14. ANALGESICS [Concomitant]
     Indication: ADVERSE EVENT
     Dosage: BASELINE, WEEKS 1, 4
  15. BETA BLOCKING AGENTS [Concomitant]
     Dosage: BASELINE, WEEKS 1, 4
  16. ALL OTHER THERAPEUTIC PRODUCTS [Concomitant]
     Indication: PROPHYLAXIS
     Dosage: BASELINE, WEEKS 1, 4
  17. CARDIAC GLYCOSIDES [Concomitant]
     Dosage: BASELINE, WEEKS 1, 4
  18. PLATELETS [Concomitant]
     Indication: PROPHYLAXIS
     Dosage: BASELINE, WEEKS 1, 4
  19. CALCIUM/VITAMIN D [Concomitant]
  20. ANALGESICS [Concomitant]
  21. SEROTONIN ANTAGONISTS [Concomitant]
     Indication: PREMEDICATION
  22. ANTIHISTAMINES [Concomitant]
     Indication: PREMEDICATION
     Dosage: WEEKS 1, 4
  23. ANALGESICS [Concomitant]
     Indication: PROPHYLAXIS
     Dosage: BASELINE, WEEKS 1, 4
  24. DIURETICS [Concomitant]
     Dosage: BASELINE, WEEKS 1, 4
  25. LASIX [Concomitant]
  26. ALPRAZOLAM [Concomitant]
  27. OTHER LIPID MODIFYING AGENTS [Concomitant]
     Dosage: BASELINE, WEEKS 1, 4
  28. ORGANIC NITRATES [Concomitant]
     Indication: PROPHYLAXIS
     Dosage: BASELINE
  29. ANTIARRHYTHMICS, CLASS I AND III [Concomitant]
     Dosage: BASELINE, WEEKS 1, 4
  30. ALL OTHER THERAPEUTIC PRODUCTS [Concomitant]
     Dosage: WEEKS 1, 4
  31. METOPROLOL TARTRATE [Concomitant]
  32. NIASPAN [Concomitant]
  33. CORTICOSTEROIDS [Concomitant]
     Indication: PREMEDICATION
  34. ANGIOTENSIN II ANTAGONISTS [Concomitant]
     Dosage: BASELINE, WEEKS 1, 4
  35. NERVOUS SYSTEM [Concomitant]
     Indication: PROPHYLAXIS
     Dosage: BASELINE
  36. ALL OTHER THERAPEUTIC PRODUCTS [Concomitant]
     Indication: ADVERSE EVENT
     Dosage: WEEK 4
  37. TAXOTERE [Suspect]
     Indication: PROSTATE CANCER
     Dosage: 75 MG/M2 INTRAVENOUSLY (IV) ONCE PER 3 WEEKS FOR 10 CYCLES
     Route: 041
     Dates: start: 20110418, end: 20110418
  38. ELIGARD [Suspect]
     Indication: PROSTATE CANCER
     Dosage: 22.5 MG SUBCUTANEOUSLY (SC) EVERY 3 MONTHS FOR 18 MONTHS
     Route: 058
     Dates: start: 20110418, end: 20110418
  39. BENICAR [Concomitant]
  40. PLAVIX [Concomitant]
  41. LEVOTHYROXINE SODIUM [Concomitant]
  42. CORTICOSTEROID NOS [Concomitant]
     Indication: PROPHYLAXIS
     Dosage: WEEKS 1, 4

REACTIONS (1)
  - ATRIAL FIBRILLATION [None]
